FAERS Safety Report 9020239 (Version 1)
Quarter: 2013Q1

REPORT INFORMATION
  Report Type: Spontaneous
  Country: US (occurrence: US)
  Receive Date: 20130119
  Receipt Date: 20130119
  Transmission Date: 20140127
  Serious: No
  Sender: FDA-Public Use
  Company Number: US-ALLERGAN-1209701US

PATIENT
  Age: 75 Year
  Sex: Female

DRUGS (3)
  1. BOTOX? [Suspect]
     Indication: HYPERTONIC BLADDER
     Dosage: 30 INJECTIONS 10 UNITS PER INJECTION
     Route: 030
     Dates: start: 20120416, end: 20120416
  2. LORAZEPAM [Concomitant]
     Indication: ANXIETY
     Dosage: UNK
     Route: 048
  3. CRESTOR                            /01588601/ [Concomitant]
     Indication: BLOOD CHOLESTEROL INCREASED
     Dosage: 2.5 MG, Q2WEEKS

REACTIONS (1)
  - Urinary retention [Not Recovered/Not Resolved]
